FAERS Safety Report 9648115 (Version 1)
Quarter: 2013Q4

REPORT INFORMATION
  Report Type: Spontaneous
  Country: BE (occurrence: BE)
  Receive Date: 20131028
  Receipt Date: 20131028
  Transmission Date: 20140711
  Serious: Yes (Hospitalization)
  Sender: FDA-Public Use
  Company Number: PHHY2013BE119760

PATIENT
  Age: 73 Year
  Sex: Female

DRUGS (3)
  1. ACLASTA [Suspect]
     Indication: OSTEOPOROSIS
     Dosage: 5 MG, UNK
     Route: 042
     Dates: start: 20131004
  2. SINTROM [Interacting]
     Indication: ATRIAL FLUTTER
     Dosage: 1-2 MG ON ALTERNATE DAY, QD
     Route: 048
  3. AVELOX [Interacting]
     Indication: LUNG INFECTION
     Dosage: UNK UKN, UNK
     Dates: start: 20131011

REACTIONS (6)
  - Respiratory distress [Recovering/Resolving]
  - Drug interaction [Recovering/Resolving]
  - Haematoma [Recovering/Resolving]
  - International normalised ratio increased [Recovering/Resolving]
  - Coagulation time prolonged [Recovering/Resolving]
  - Pyrexia [Recovering/Resolving]
